FAERS Safety Report 17188545 (Version 1)
Quarter: 2019Q4

REPORT INFORMATION
  Report Type: Other
  Country: US (occurrence: US)
  Receive Date: 20191222
  Receipt Date: 20191222
  Transmission Date: 20200122
  Serious: No
  Sender: FDA-Public Use
  Company Number: US-ACORDA-ACO_161806_2019

PATIENT
  Age: 56 Year
  Sex: Male

DRUGS (1)
  1. INBRIJA [Suspect]
     Active Substance: LEVODOPA
     Indication: PRODUCT USED FOR UNKNOWN INDICATION
     Dosage: 84 MILLIGRAM, PRN
     Dates: start: 20191001

REACTIONS (1)
  - Tooth disorder [Unknown]

NARRATIVE: CASE EVENT DATE: 20191023
